FAERS Safety Report 9820126 (Version 1)
Quarter: 2014Q1

REPORT INFORMATION
  Report Type: Spontaneous
  Country: US (occurrence: None)
  Receive Date: 20140113
  Receipt Date: 20140113
  Transmission Date: 20141002
  Serious: Yes (Life-Threatening, Hospitalization, Other)
  Sender: FDA-Public Use
  Company Number: None

PATIENT
  Age: 60 Year
  Sex: Female
  Weight: 117.94 kg

DRUGS (1)
  1. ATROVENT [Suspect]
     Indication: CARDIAC FAILURE CONGESTIVE
     Dates: start: 20130713

REACTIONS (9)
  - Abnormal behaviour [None]
  - Hypersomnia [None]
  - Depressed level of consciousness [None]
  - Swelling [None]
  - Drug hypersensitivity [None]
  - Feeling abnormal [None]
  - Cardiac failure congestive [None]
  - Anxiety [None]
  - Retching [None]
